FAERS Safety Report 24103083 (Version 3)
Quarter: 2024Q3

REPORT INFORMATION
  Report Type: Spontaneous
  Country: AU (occurrence: AU)
  Receive Date: 20240717
  Receipt Date: 20240923
  Transmission Date: 20241017
  Serious: Yes (Other)
  Sender: MERCK
  Company Number: AU-009507513-2407AUS004625

PATIENT
  Age: 68 Year
  Sex: Male

DRUGS (1)
  1. KEYTRUDA [Suspect]
     Active Substance: PEMBROLIZUMAB
     Indication: Thyroid cancer
     Dosage: UNK

REACTIONS (1)
  - Thyroid cancer recurrent [Unknown]
